FAERS Safety Report 21956057 (Version 2)
Quarter: 2023Q1

REPORT INFORMATION
  Report Type: Spontaneous
  Country: US (occurrence: None)
  Receive Date: 20230206
  Receipt Date: 20230321
  Transmission Date: 20230418
  Serious: Yes (Hospitalization)
  Sender: FDA-Public Use
  Company Number: 2023A025905

PATIENT
  Sex: Male
  Weight: 65.8 kg

DRUGS (3)
  1. BYDUREON BCISE [Suspect]
     Active Substance: EXENATIDE
     Indication: Type 2 diabetes mellitus
     Dosage: 2.0MG UNKNOWN
     Route: 058
     Dates: start: 2018
  2. JANUVIA [Concomitant]
     Active Substance: SITAGLIPTIN PHOSPHATE
  3. JARDIANCE [Concomitant]
     Active Substance: EMPAGLIFLOZIN

REACTIONS (12)
  - Gallbladder disorder [Unknown]
  - Renal failure [Unknown]
  - Fungal infection [Unknown]
  - Burning sensation [Unknown]
  - Scar [Unknown]
  - Injection site haemorrhage [Unknown]
  - Injection site pain [Unknown]
  - Weight decreased [Unknown]
  - Pruritus [Unknown]
  - Wrong technique in device usage process [Unknown]
  - Device delivery system issue [Unknown]
  - Device issue [Unknown]
